FAERS Safety Report 23583197 (Version 1)
Quarter: 2024Q1

REPORT INFORMATION
  Report Type: Spontaneous
  Country: CN (occurrence: None)
  Receive Date: 20240301
  Receipt Date: 20240301
  Transmission Date: 20240409
  Serious: Yes (Other)
  Sender: FDA-Public Use
  Company Number: CN-Solstice Neurosciences, LLC-SOL202402-000653

PATIENT
  Age: 39 Year
  Sex: Female

DRUGS (1)
  1. RIMABOTULINUMTOXINB [Suspect]
     Active Substance: RIMABOTULINUMTOXINB
     Indication: Skin wrinkling
     Dosage: NOT PROVIDED

REACTIONS (2)
  - Infection [Unknown]
  - Product use in unapproved indication [Unknown]
